FAERS Safety Report 5183030-4 (Version None)
Quarter: 2006Q4

REPORT INFORMATION
  Report Type: 
  Country: None (occurrence: None)
  Receive Date: 20061220
  Receipt Date: 20051205
  Transmission Date: 20070319
  Serious: No
  Sender: FDA-Public Use
  Company Number: US-GLAXOSMITHKLINE-A0584615A

PATIENT
  Age: 62 Year
  Sex: Male

DRUGS (1)
  1. MEMBERS MARK NTS ORIGINAL [Suspect]
     Indication: TOBACCO ABUSE
     Dates: end: 20051203

REACTIONS (3)
  - DRUG WITHDRAWAL SYNDROME [None]
  - IRRITABILITY [None]
  - NICOTINE DEPENDENCE [None]
